FAERS Safety Report 25555056 (Version 1)
Quarter: 2025Q3

REPORT INFORMATION
  Report Type: Spontaneous
  Country: US (occurrence: US)
  Receive Date: 20250715
  Receipt Date: 20250715
  Transmission Date: 20251020
  Serious: Yes (Other)
  Sender: NOVARTIS
  Company Number: US-002147023-NVSC2025US111719

PATIENT
  Sex: Female

DRUGS (1)
  1. ENTRESTO [Suspect]
     Active Substance: SACUBITRIL\VALSARTAN
     Indication: Product used for unknown indication
     Route: 065

REACTIONS (6)
  - Breast cancer [Unknown]
  - Cervix carcinoma [Unknown]
  - Renal pain [Unknown]
  - Cystitis [Unknown]
  - Arthralgia [Unknown]
  - Gastrointestinal pain [Unknown]
